FAERS Safety Report 26097972 (Version 2)
Quarter: 2025Q4

REPORT INFORMATION
  Report Type: Spontaneous
  Country: US (occurrence: US)
  Receive Date: 20251127
  Receipt Date: 20251211
  Transmission Date: 20260117
  Serious: Yes (Life-Threatening, Hospitalization)
  Sender: TEVA
  Company Number: US-TEVA-VS-3395746

PATIENT
  Age: 41 Year
  Sex: Male

DRUGS (6)
  1. NALOXONE [Suspect]
     Active Substance: NALOXONE
     Indication: Drug toxicity prophylaxis
     Route: 065
  2. CLONIDINE [Concomitant]
     Active Substance: CLONIDINE
     Indication: Agitation
     Route: 065
  3. FONTURACETAM [Suspect]
     Active Substance: FONTURACETAM
     Indication: Product used for unknown indication
     Route: 065
  4. QUETIAPINE [Concomitant]
     Active Substance: QUETIAPINE
     Indication: Agitation
     Route: 065
  5. HERBALS\MITRAGYNINE [Suspect]
     Active Substance: HERBALS\MITRAGYNINE
     Indication: Product used for unknown indication
     Route: 065
  6. DEVICE [Suspect]
     Active Substance: DEVICE

REACTIONS (8)
  - Encephalopathy [Unknown]
  - Therapy non-responder [Unknown]
  - Hypotension [Unknown]
  - Tachycardia [Unknown]
  - Hyperthermia [Unknown]
  - Intentional product misuse [Unknown]
  - Leukocytosis [Unknown]
  - Autonomic nervous system imbalance [Unknown]
